FAERS Safety Report 7889589-8 (Version None)
Quarter: 2011Q4

REPORT INFORMATION
  Report Type: 
  Country: None (occurrence: None)
  Receive Date: 20111103
  Receipt Date: 20110617
  Transmission Date: 20120403
  Serious: Yes (Hospitalization)
  Sender: FDA-Public Use
  Company Number: US-BRISTOL-MYERS SQUIBB COMPANY-15800758

PATIENT
  Age: 38 Year
  Sex: Male

DRUGS (5)
  1. LYRICA [Concomitant]
  2. TOPAMAX [Concomitant]
  3. KENALOG-40 [Suspect]
     Indication: NECK PAIN
     Dosage: 3RD INJ ON 26MAY11;EXP DATE:01SEP2012,TRANSLAMINAR ROUTE
     Dates: start: 20110428
  4. KENALOG-40 [Suspect]
     Indication: RADICULOPATHY
     Dosage: 3RD INJ ON 26MAY11;EXP DATE:01SEP2012,TRANSLAMINAR ROUTE
     Dates: start: 20110428
  5. BUPIVACAINE HCL [Suspect]
     Dates: start: 20110428

REACTIONS (1)
  - ANAPHYLACTIC REACTION [None]
